FAERS Safety Report 9219476 (Version 1)
Quarter: 2013Q2

REPORT INFORMATION
  Report Type: Spontaneous
  Country: US (occurrence: None)
  Receive Date: 20130408
  Receipt Date: 20130408
  Transmission Date: 20140414
  Serious: Yes (Other)
  Sender: FDA-Public Use
  Company Number: None

PATIENT
  Age: 22 Year
  Sex: Female
  Weight: 81.65 kg

DRUGS (2)
  1. ESCITALOPRAM OXALATE [Suspect]
     Indication: ANXIETY
     Route: 048
     Dates: start: 20130321
  2. ESCITALOPRAM OXALATE [Suspect]
     Indication: PREGNANCY
     Route: 048
     Dates: start: 20130321

REACTIONS (4)
  - Product substitution issue [None]
  - Nausea [None]
  - Vomiting [None]
  - Dizziness [None]
